FAERS Safety Report 15722623 (Version 1)
Quarter: 2018Q4

REPORT INFORMATION
  Report Type: Spontaneous
  Country: US (occurrence: US)
  Receive Date: 20181130
  Receipt Date: 20181130
  Transmission Date: 20190205
  Serious: No
  Sender: FDA-Public Use
  Company Number: None

PATIENT
  Sex: Male

DRUGS (1)
  1. BIKTARVY [Suspect]
     Active Substance: BICTEGRAVIR SODIUM\EMTRICITABINE\TENOFOVIR ALAFENAMIDE FUMARATE
     Indication: HEPATITIS C
     Dosage: ?          OTHER STRENGTH:50/200/25M ;OTHER DOSE:50/200/25 MG;?
     Route: 048
     Dates: start: 20180811

REACTIONS (3)
  - Dry skin [None]
  - Skin exfoliation [None]
  - Body temperature fluctuation [None]
